FAERS Safety Report 21124526 (Version 7)
Quarter: 2022Q3

REPORT INFORMATION
  Report Type: Spontaneous
  Country: US (occurrence: US)
  Receive Date: 20220725
  Receipt Date: 20220902
  Transmission Date: 20221026
  Serious: No
  Sender: FDA-Public Use
  Company Number: US-AMGEN-USASP2022124605

PATIENT
  Age: 73 Year
  Sex: Female
  Weight: 64.5 kg

DRUGS (2)
  1. NEULASTA [Suspect]
     Active Substance: PEGFILGRASTIM
     Indication: Prophylaxis
     Dosage: 6000 MICROGRAM
     Route: 065
     Dates: start: 20220329
  2. NEULASTA [Suspect]
     Active Substance: PEGFILGRASTIM
     Dosage: 6000 MICROGRAM
     Route: 065
     Dates: start: 20220329

REACTIONS (2)
  - Accidental exposure to product [Unknown]
  - Device issue [Recovered/Resolved]

NARRATIVE: CASE EVENT DATE: 20220713
